FAERS Safety Report 11937107 (Version 5)
Quarter: 2019Q4

REPORT INFORMATION
  Report Type: Report from Study
  Country: None (occurrence: BR)
  Receive Date: 20160121
  Receipt Date: 20191011
  Transmission Date: 20200122
  Serious: Yes (Hospitalization, Other)
  Sender: FDA-Public Use
  Company Number: BR-ABBVIE-16K-020-1540119-00

PATIENT
  Age: 49 Year
  Sex: Female
  Weight: 60 kg

DRUGS (15)
  1. CYCLOBENZAPRINE. [Concomitant]
     Active Substance: CYCLOBENZAPRINE
     Indication: SPONDYLITIS
     Route: 048
     Dates: start: 20140901
  2. HUMIRA [Suspect]
     Active Substance: ADALIMUMAB
     Route: 058
     Dates: end: 201804
  3. FAMOTIDINE. [Concomitant]
     Active Substance: FAMOTIDINE
     Indication: SPONDYLITIS
     Route: 048
     Dates: start: 20140901
  4. AZULFIDINE [Concomitant]
     Active Substance: SULFASALAZINE
     Dosage: 1 TABLET AT MORNING AND 1 TABLET AT NIGHT
     Route: 048
  5. ACETAMINOPHEN. [Concomitant]
     Active Substance: ACETAMINOPHEN
     Indication: SPONDYLITIS
     Route: 048
     Dates: start: 20140901
  6. METHOTREXATE. [Concomitant]
     Active Substance: METHOTREXATE
     Indication: ANKYLOSING SPONDYLITIS
     Route: 048
     Dates: start: 20140901
  7. AZULFIDINE [Concomitant]
     Active Substance: SULFASALAZINE
     Indication: ANKYLOSING SPONDYLITIS
     Dosage: 1 TABLET AT MORNING AND 1 TABLET AT NIGHT
     Route: 048
  8. HUMIRA [Suspect]
     Active Substance: ADALIMUMAB
     Route: 058
     Dates: start: 201806, end: 201808
  9. VELIJA [Concomitant]
     Active Substance: DULOXETINE HYDROCHLORIDE
     Indication: DEPRESSION
     Route: 048
  10. INDOCID [Concomitant]
     Active Substance: INDOMETHACIN
     Indication: ANKYLOSING SPONDYLITIS
  11. HUMIRA [Suspect]
     Active Substance: ADALIMUMAB
     Indication: ANKYLOSING SPONDYLITIS
     Route: 058
     Dates: start: 20140901
  12. CODEINE [Concomitant]
     Active Substance: CODEINE
     Indication: SPONDYLITIS
     Route: 048
     Dates: start: 20140901
  13. METHOTREXATE. [Concomitant]
     Active Substance: METHOTREXATE
     Indication: SPONDYLITIS
     Route: 048
  14. HUMIRA [Suspect]
     Active Substance: ADALIMUMAB
     Route: 058
     Dates: start: 201901
  15. CALCIUM [Concomitant]
     Active Substance: CALCIUM
     Indication: OSTEOPOROSIS
     Route: 048
     Dates: start: 201504

REACTIONS (24)
  - Bone loss [Recovered/Resolved]
  - Delayed recovery from anaesthesia [Recovered/Resolved]
  - Cardiac arrest [Recovered/Resolved]
  - Musculoskeletal pain [Not Recovered/Not Resolved]
  - Gait inability [Not Recovered/Not Resolved]
  - Somnolence [Unknown]
  - Therapeutic product effect incomplete [Not Recovered/Not Resolved]
  - Intervertebral disc disorder [Not Recovered/Not Resolved]
  - Dermatitis allergic [Unknown]
  - Device dislocation [Unknown]
  - Bone loss [Recovered/Resolved]
  - Ankylosing spondylitis [Not Recovered/Not Resolved]
  - Pain in extremity [Not Recovered/Not Resolved]
  - Bone loss [Unknown]
  - Limb deformity [Not Recovered/Not Resolved]
  - Body height decreased [Unknown]
  - Depressed mood [Not Recovered/Not Resolved]
  - Joint arthroplasty [Unknown]
  - Resorption bone decreased [Not Recovered/Not Resolved]
  - Neck pain [Not Recovered/Not Resolved]
  - Blood cholesterol increased [Recovering/Resolving]
  - Weight decreased [Unknown]
  - Weight decreased [Recovered/Resolved]
  - Spinal pain [Not Recovered/Not Resolved]

NARRATIVE: CASE EVENT DATE: 201411
